FAERS Safety Report 6965182-6 (Version None)
Quarter: 2010Q3

REPORT INFORMATION
  Report Type: 
  Country: None (occurrence: None)
  Receive Date: 20100903
  Receipt Date: 20100825
  Transmission Date: 20110219
  Serious: Yes (Other)
  Sender: FDA-Public Use
  Company Number: CO-PFIZER INC-2010108394

PATIENT
  Age: 49 Year
  Sex: Female
  Weight: 55 kg

DRUGS (4)
  1. LYRICA [Suspect]
     Indication: FIBROMYALGIA
     Dosage: 75 MG, 1X/DAY
     Route: 048
     Dates: start: 20100221
  2. CARBAMAZEPINE [Concomitant]
     Indication: EPILEPSY
     Dosage: 200 MG, 3X/DAY
     Route: 048
     Dates: start: 20020101
  3. LEVOTHYROXINE SODIUM [Concomitant]
     Indication: HYPOTHYROIDISM
     Dosage: 75 UG, 1X/DAY
     Route: 048
  4. CLONAZEPAM [Concomitant]
     Indication: TORTICOLLIS
     Dosage: UNK

REACTIONS (6)
  - DIARRHOEA [None]
  - ELECTROENCEPHALOGRAM ABNORMAL [None]
  - NAUSEA [None]
  - PAIN [None]
  - PARTIAL SEIZURES [None]
  - WEIGHT INCREASED [None]
